FAERS Safety Report 4524809-9 (Version None)
Quarter: 2004Q4

REPORT INFORMATION
  Report Type: 
  Country: None (occurrence: None)
  Receive Date: 20041203
  Receipt Date: 20041118
  Transmission Date: 20050328
  Serious: Yes (Death)
  Sender: FDA-Public Use
  Company Number: D01200404475

PATIENT
  Age: 70 Year
  Sex: Female

DRUGS (1)
  1. RASBURICASE - SOLUTION [Suspect]
     Dosage: 0.2 MG/KG - INTRAVENOUS NOS
     Route: 042
     Dates: start: 20040921, end: 20040923

REACTIONS (12)
  - ANTI-HBS ANTIBODY POSITIVE [None]
  - CARDIAC ARREST [None]
  - CHOLELITHIASIS [None]
  - GASTROINTESTINAL HAEMORRHAGE [None]
  - HAEMATURIA [None]
  - HEPATIC FAILURE [None]
  - HEPATOTOXICITY [None]
  - PLATELET COUNT DECREASED [None]
  - PULMONARY HAEMORRHAGE [None]
  - REFUSAL OF TREATMENT BY RELATIVE [None]
  - RENAL FAILURE [None]
  - SEPSIS [None]
